FAERS Safety Report 13369202 (Version 5)
Quarter: 2018Q4

REPORT INFORMATION
  Report Type: Report from Study
  Country: US (occurrence: US)
  Receive Date: 20170324
  Receipt Date: 20181029
  Transmission Date: 20190204
  Serious: No
  Sender: FDA-Public Use
  Company Number: PHHY2017US043197

PATIENT
  Age: 42 Year
  Sex: Female

DRUGS (1)
  1. GILENYA [Suspect]
     Active Substance: FINGOLIMOD HYDROCHLORIDE
     Indication: MULTIPLE SCLEROSIS
     Dosage: UNK, QD
     Route: 048

REACTIONS (8)
  - White blood cell count decreased [Unknown]
  - Lymphocyte count decreased [Unknown]
  - Blood cholesterol increased [Unknown]
  - Muscular weakness [Recovered/Resolved]
  - Dizziness postural [Unknown]
  - Low density lipoprotein increased [Unknown]
  - Headache [Unknown]
  - Clumsiness [Recovered/Resolved]

NARRATIVE: CASE EVENT DATE: 20170116
